FAERS Safety Report 21628182 (Version 1)
Quarter: 2022Q4

REPORT INFORMATION
  Report Type: Spontaneous
  Country: US (occurrence: None)
  Receive Date: 20221118
  Receipt Date: 20221118
  Transmission Date: 20230113
  Serious: No
  Sender: FDA-Public Use
  Company Number: None

PATIENT
  Sex: Female

DRUGS (2)
  1. TREPROSTINIL [Suspect]
     Active Substance: TREPROSTINIL
     Indication: Pulmonary arterial hypertension
     Dosage: OTHER QUANTITY : 94.7NG/KG/MIN;?OTHER FREQUENCY : CONTINUOUS; SQ?
     Route: 058
     Dates: start: 20221117
  2. DEVICE [Suspect]
     Active Substance: DEVICE

REACTIONS (5)
  - Injection site pain [None]
  - Injection site pruritus [None]
  - Injection site irritation [None]
  - Dermatitis contact [None]
  - Dyspnoea exertional [None]
